FAERS Safety Report 10282176 (Version 5)
Quarter: 2014Q4

REPORT INFORMATION
  Report Type: Spontaneous
  Country: US (occurrence: US)
  Receive Date: 20140707
  Receipt Date: 20141002
  Transmission Date: 20150528
  Serious: Yes (Other)
  Sender: FDA-Public Use
  Company Number: US-PFIZER INC-2014185244

PATIENT
  Sex: Female
  Weight: 82 kg

DRUGS (8)
  1. ADVIL [Concomitant]
     Active Substance: IBUPROFEN
     Indication: PAIN
  2. MULTIVITAMINS [Concomitant]
     Active Substance: VITAMINS
     Indication: PROPHYLAXIS
     Dosage: 600 MG, DAILY
     Dates: start: 1989
  3. TYLENOL [Concomitant]
     Active Substance: ACETAMINOPHEN
     Indication: HEADACHE
     Dosage: 200 MG, AS NEEDED
     Dates: start: 1989
  4. TYLENOL [Concomitant]
     Active Substance: ACETAMINOPHEN
     Indication: PAIN
  5. LIPITOR [Suspect]
     Active Substance: ATORVASTATIN CALCIUM
     Indication: BLOOD CHOLESTEROL
     Dosage: 40 MG, ONCE DAILY
     Route: 048
     Dates: start: 2000
  6. ADVIL [Concomitant]
     Active Substance: IBUPROFEN
     Indication: PAIN
  7. TYLENOL [Concomitant]
     Active Substance: ACETAMINOPHEN
     Indication: PAIN
  8. ADVIL [Concomitant]
     Active Substance: IBUPROFEN
     Indication: HEADACHE
     Dosage: 200 MG, AS NEEDED
     Dates: start: 1989

REACTIONS (1)
  - Type 2 diabetes mellitus [Not Recovered/Not Resolved]
